FAERS Safety Report 10885450 (Version 2)
Quarter: 2015Q1

REPORT INFORMATION
  Report Type: Spontaneous
  Country: FR (occurrence: FR)
  Receive Date: 20150304
  Receipt Date: 20150327
  Transmission Date: 20150721
  Serious: Yes (Other)
  Sender: FDA-Public Use
  Company Number: FR-PFIZER INC-2015075036

PATIENT
  Age: 58 Year
  Sex: Male
  Weight: 72 kg

DRUGS (6)
  1. CRESTOR [Concomitant]
     Active Substance: ROSUVASTATIN CALCIUM
     Indication: PROPHYLAXIS
  2. DIAMICRON [Concomitant]
     Active Substance: GLICLAZIDE
     Indication: DIABETES MELLITUS
     Dosage: 0.5 DF, 1X/DAY
  3. EFFEXOR LP [Suspect]
     Active Substance: VENLAFAXINE HYDROCHLORIDE
     Indication: DEPRESSION
     Dosage: 150 MG, DAILY
     Dates: start: 20150202, end: 20150302
  4. XANAX [Concomitant]
     Active Substance: ALPRAZOLAM
     Indication: SLEEP DISORDER
     Dosage: 0.25 MG, 1X/DAY
     Route: 048
     Dates: start: 20150202
  5. GLUCOPHAGE [Concomitant]
     Active Substance: METFORMIN HYDROCHLORIDE
  6. NOCTAMIDE [Concomitant]
     Active Substance: LORMETAZEPAM
     Indication: ANXIOLYTIC THERAPY
     Dosage: 1 MG, 3X/DAY
     Route: 048
     Dates: start: 20150202

REACTIONS (4)
  - Urinary tract obstruction [Unknown]
  - Urinary retention [Recovered/Resolved]
  - Micturition disorder [Unknown]
  - Nocturia [Unknown]

NARRATIVE: CASE EVENT DATE: 201502
